APPROVED DRUG PRODUCT: RIBAVIRIN
Active Ingredient: RIBAVIRIN
Strength: 600MG
Dosage Form/Route: TABLET;ORAL
Application: A077456 | Product #003
Applicant: CHARTWELL RX SCIENCES LLC
Approved: Dec 5, 2005 | RLD: No | RS: No | Type: DISCN